FAERS Safety Report 7358198-1 (Version None)
Quarter: 2011Q1

REPORT INFORMATION
  Report Type: 
  Country: None (occurrence: None)
  Receive Date: 20110317
  Receipt Date: 20110316
  Transmission Date: 20110831
  Serious: Yes (Hospitalization)
  Sender: FDA-Public Use
  Company Number: CN-ROCHE-653860

PATIENT
  Sex: Male
  Weight: 55 kg

DRUGS (3)
  1. BLINDED BEVACIZUMAB [Suspect]
     Indication: GASTRIC CANCER
     Dosage: FREQUENCY: D1 Q3W, DOSE FORM: INFUSION.
     Route: 042
     Dates: start: 20090714
  2. CISPLATIN [Suspect]
     Indication: GASTRIC CANCER
     Dosage: DOSE FORM: INFUSION.
     Route: 042
     Dates: start: 20090714
  3. CAPECITABINE [Suspect]
     Indication: GASTRIC CANCER
     Dosage: REPORTED FREQUENCY: D1-D14 Q3W. ROUTE: BID PO.
     Route: 048
     Dates: start: 20090714, end: 20090831

REACTIONS (1)
  - DIABETES MELLITUS [None]
